FAERS Safety Report 14856369 (Version 2)
Quarter: 2019Q2

REPORT INFORMATION
  Report Type: Spontaneous
  Country: US (occurrence: US)
  Receive Date: 20180507
  Receipt Date: 20190509
  Transmission Date: 20190711
  Serious: No
  Sender: FDA-Public Use
  Company Number: US-ROCHE-2034118

PATIENT
  Age: 87 Year
  Sex: Female

DRUGS (3)
  1. COUMADIN [Concomitant]
     Active Substance: WARFARIN SODIUM
     Dosage: ONGOING: YES
     Route: 065
     Dates: start: 201709
  2. ESBRIET [Suspect]
     Active Substance: PIRFENIDONE
     Indication: PRODUCT USED FOR UNKNOWN INDICATION
     Dosage: 3 PILLS 3 TIMES A DAY ;ONGOING: YES
     Route: 048
     Dates: start: 201701
  3. COUMADIN [Concomitant]
     Active Substance: WARFARIN SODIUM
     Indication: ATRIAL FIBRILLATION
     Dosage: ONGOING: NO
     Route: 065
     Dates: end: 2017

REACTIONS (7)
  - Diarrhoea [Unknown]
  - International normalised ratio decreased [Recovered/Resolved]
  - Insomnia [Unknown]
  - Fatigue [Not Recovered/Not Resolved]
  - Abdominal pain upper [Recovered/Resolved]
  - Nausea [Unknown]
  - Asthenia [Not Recovered/Not Resolved]

NARRATIVE: CASE EVENT DATE: 2017
